FAERS Safety Report 7484040-4 (Version None)
Quarter: 2011Q2

REPORT INFORMATION
  Report Type: 
  Country: None (occurrence: None)
  Receive Date: 20110517
  Receipt Date: 20110511
  Transmission Date: 20111010
  Serious: Yes (Death, Hospitalization, Other)
  Sender: FDA-Public Use
  Company Number: BR-PFIZER INC-2011096169

PATIENT
  Age: 83 Year
  Sex: Male

DRUGS (2)
  1. GENOTROPIN [Suspect]
     Dosage: 0.2 MG, 1X/DAY
     Route: 058
     Dates: start: 20100412
  2. GENOTROPIN [Suspect]
     Dosage: 0.3 MG, 1X/DAY
     Route: 058
     Dates: start: 20110101

REACTIONS (3)
  - PAIN IN EXTREMITY [None]
  - WALKING DISABILITY [None]
  - CEREBROVASCULAR ACCIDENT [None]
